FAERS Safety Report 19225872 (Version 3)
Quarter: 2021Q2

REPORT INFORMATION
  Report Type: Spontaneous
  Country: US (occurrence: US)
  Receive Date: 20210506
  Receipt Date: 20210628
  Transmission Date: 20210717
  Serious: Yes (Death)
  Sender: FDA-Public Use
  Company Number: US-PFIZER INC-2021430802

PATIENT
  Age: 69 Year
  Sex: Female

DRUGS (2)
  1. IBRANCE [Suspect]
     Active Substance: PALBOCICLIB
     Dosage: 125 MG, CYCLIC (TAKE 1 TABLET DAILY ON DAYS 1?21 EVERY 28 DAYS WITH FOOD)
     Route: 048
     Dates: start: 20210415, end: 20210425
  2. IBRANCE [Suspect]
     Active Substance: PALBOCICLIB
     Indication: BREAST CANCER FEMALE
     Dosage: 125 MG, CYCLIC (TAKE 1 TABLET DAILY ON DAYS 1?21 EVERY 28 DAYS WITH FOOD)
     Route: 048
     Dates: start: 20210308, end: 20210412

REACTIONS (1)
  - Neoplasm progression [Fatal]
